FAERS Safety Report 9538921 (Version 2)
Quarter: 2013Q3

REPORT INFORMATION
  Report Type: Spontaneous
  Country: BR (occurrence: BR)
  Receive Date: 20130920
  Receipt Date: 20130920
  Transmission Date: 20140515
  Serious: Yes (Death, Other)
  Sender: FDA-Public Use
  Company Number: BR-PFIZER INC-2013244897

PATIENT
  Age: 75 Year
  Sex: Male

DRUGS (3)
  1. SUTENT [Suspect]
     Indication: RENAL CANCER
     Dosage: 50 MG ONCE DAILY, CYCLIC, 4 WEEKS ON, 2 WEEKS OFF
     Route: 048
     Dates: start: 20130703
  2. SUTENT [Suspect]
     Indication: RENAL CELL CARCINOMA
  3. METFORMIN [Concomitant]
     Dosage: 850 MG, 1X/DAY

REACTIONS (5)
  - Death [Fatal]
  - Haemorrhage [Unknown]
  - Haematemesis [Unknown]
  - Productive cough [Unknown]
  - Haemoptysis [Unknown]
